FAERS Safety Report 4360825-8 (Version None)
Quarter: 2004Q2

REPORT INFORMATION
  Report Type: 
  Country: None (occurrence: None)
  Receive Date: 20040517
  Receipt Date: 20040421
  Transmission Date: 20050107
  Serious: Yes (Other)
  Sender: FDA-Public Use
  Company Number: 23957

PATIENT
  Age: 49 Year
  Sex: Female

DRUGS (1)
  1. ALDARA [Suspect]
     Indication: LENTIGO MALIGNA STAGE UNSPECIFIED
     Dosage: 1 IN 1 DAY(S); TOPICAL
     Route: 061
     Dates: start: 20040322, end: 20040405

REACTIONS (5)
  - APPLICATION SITE INFLAMMATION [None]
  - APPLICATION SITE PAIN [None]
  - CONJUNCTIVITIS [None]
  - HERPES SIMPLEX [None]
  - NECROSIS [None]
